FAERS Safety Report 5149432-7 (Version None)
Quarter: 2006Q4

REPORT INFORMATION
  Report Type: 
  Country: None (occurrence: None)
  Receive Date: 20061113
  Receipt Date: 20060112
  Transmission Date: 20070319
  Serious: Yes (Other)
  Sender: FDA-Public Use
  Company Number: 432263

PATIENT
  Age: 75 Year
  Sex: Female

DRUGS (10)
  1. COREG [Suspect]
     Dosage: 3.125MG TWICE PER DAY
     Route: 048
  2. CARDIZEM [Concomitant]
  3. FUROSEMIDE [Concomitant]
  4. LANOXIN [Concomitant]
  5. LISINOPRIL [Concomitant]
  6. PLAVIX [Concomitant]
  7. XALATAN [Concomitant]
  8. BETOPTIC [Concomitant]
  9. TYLENOL [Concomitant]
  10. NASACORT [Concomitant]

REACTIONS (3)
  - DIZZINESS [None]
  - HYPERHIDROSIS [None]
  - SYNCOPE [None]
